FAERS Safety Report 10904847 (Version 1)
Quarter: 2015Q1

REPORT INFORMATION
  Report Type: Spontaneous
  Country: MX (occurrence: MX)
  Receive Date: 20150311
  Receipt Date: 20150311
  Transmission Date: 20150721
  Serious: Yes (Hospitalization)
  Sender: FDA-Public Use
  Company Number: MX-MUNDIPHARMA DS AND PHARMACOVIGILANCE-GBR-2015-0026233

PATIENT
  Sex: Male

DRUGS (1)
  1. SOLORO7 [Suspect]
     Active Substance: BUPRENORPHINE
     Indication: NEUROPATHY PERIPHERAL
     Dosage: 5 MG, UNK ( 1 DF)
     Route: 062
     Dates: start: 20150105

REACTIONS (1)
  - Gastrointestinal bacterial infection [Unknown]
